FAERS Safety Report 13815495 (Version 1)
Quarter: 2017Q3

REPORT INFORMATION
  Report Type: Spontaneous
  Country: US (occurrence: US)
  Receive Date: 20170731
  Receipt Date: 20170731
  Transmission Date: 20171127
  Serious: Yes (Hospitalization)
  Sender: FDA-Public Use
  Company Number: None

PATIENT
  Age: 76 Year
  Sex: Female

DRUGS (1)
  1. SILDENAFIL 20MG CAMBER PHARMACEUTICALS [Suspect]
     Active Substance: SILDENAFIL
     Indication: SYSTEMIC SCLERODERMA
     Route: 048
     Dates: start: 20160923

REACTIONS (2)
  - Drug dose omission [None]
  - Hypertension [None]

NARRATIVE: CASE EVENT DATE: 20170728
